FAERS Safety Report 25390757 (Version 1)
Quarter: 2025Q2

REPORT INFORMATION
  Report Type: Spontaneous
  Country: JP (occurrence: JP)
  Receive Date: 20250603
  Receipt Date: 20250603
  Transmission Date: 20250716
  Serious: Yes (Hospitalization, Other)
  Sender: MERCK SHARP & DOHME LLC
  Company Number: JP-009507513-2289569

PATIENT
  Age: 5 Decade
  Sex: Female

DRUGS (1)
  1. KEYTRUDA [Suspect]
     Active Substance: PEMBROLIZUMAB
     Indication: Triple negative breast cancer
     Route: 041
     Dates: start: 202409

REACTIONS (11)
  - Meningitis [Recovered/Resolved]
  - Altered state of consciousness [Recovered/Resolved]
  - Lymphocyte count increased [Unknown]
  - Magnetic resonance imaging head abnormal [Unknown]
  - Headache [Recovered/Resolved]
  - Meningitis aseptic [Recovered/Resolved]
  - Nausea [Recovered/Resolved]
  - CSF protein increased [Unknown]
  - Immune-mediated encephalitis [Recovered/Resolved]
  - Pyrexia [Recovered/Resolved]
  - Myoclonus [Recovered/Resolved]

NARRATIVE: CASE EVENT DATE: 20250518
